FAERS Safety Report 10677264 (Version 1)
Quarter: 2014Q4

REPORT INFORMATION
  Report Type: Spontaneous
  Country: US (occurrence: US)
  Receive Date: 20141226
  Receipt Date: 20141226
  Transmission Date: 20150529
  Serious: No
  Sender: FDA-Public Use
  Company Number: US-BAUSCH-SYM-2013-13742

PATIENT
  Age: 59 Year
  Sex: Female

DRUGS (1)
  1. XENAZINE [Suspect]
     Active Substance: TETRABENAZINE
     Indication: DYSKINESIA
     Dosage: 1 TABLET EVERY 4 HOURS
     Route: 048
     Dates: start: 20130111

REACTIONS (2)
  - Paranoia [Unknown]
  - Depressed mood [Unknown]

NARRATIVE: CASE EVENT DATE: 20131120
